FAERS Safety Report 12079459 (Version 1)
Quarter: 2016Q1

REPORT INFORMATION
  Report Type: Spontaneous
  Country: US (occurrence: None)
  Receive Date: 20160212
  Receipt Date: 20160212
  Transmission Date: 20160526
  Serious: No
  Sender: FDA-Public Use
  Company Number: None

PATIENT
  Age: 65 Year
  Sex: Female
  Weight: 68.04 kg

DRUGS (12)
  1. ZOLPDEM [Concomitant]
  2. HYDROCORTIZONE LOTION [Concomitant]
  3. FLUOCINONICIDE TOPICAL SOLUTION USP. 0.05% [Concomitant]
  4. MIRALAX POLYETHYLENE GLYCOL 3350, POWDER, OSMOTIC LAXATIVE [Concomitant]
  5. LINZESS [Suspect]
     Active Substance: LINACLOTIDE
     Indication: ABDOMINAL DISCOMFORT
     Dosage: 290 MCG 1 PILL DAILY BY MOUTH
     Route: 048
     Dates: start: 20150210, end: 20150411
  6. FLUOCINOLONE ACETONIDE OIL EAR DROPS [Concomitant]
  7. KETOCONAZOLE 2% SHAMPOO [Concomitant]
     Active Substance: KETOCONAZOLE
  8. LINZESS [Suspect]
     Active Substance: LINACLOTIDE
     Indication: CONSTIPATION
     Dosage: 290 MCG 1 PILL DAILY BY MOUTH
     Route: 048
     Dates: start: 20150210, end: 20150411
  9. NEXIUM [Concomitant]
     Active Substance: ESOMEPRAZOLE MAGNESIUM
  10. ALAVERT (TABLETS) D-12 [Concomitant]
  11. COLACE [Concomitant]
     Active Substance: DOCUSATE SODIUM
  12. OSMOTIC LAXATIVE [Concomitant]

REACTIONS (1)
  - Alopecia [None]

NARRATIVE: CASE EVENT DATE: 20150314
